FAERS Safety Report 7713617-3 (Version None)
Quarter: 2011Q3

REPORT INFORMATION
  Report Type: 
  Country: None (occurrence: None)
  Receive Date: 20110826
  Receipt Date: 20110707
  Transmission Date: 20111222
  Serious: Yes (Hospitalization, Other)
  Sender: FDA-Public Use
  Company Number: PHHY2011DK61293

PATIENT
  Sex: Female

DRUGS (6)
  1. OXALIPLATIN [Suspect]
     Indication: COLON CANCER
     Dosage: 203 MG, UNK
     Route: 042
     Dates: start: 20060406
  2. XELODA [Suspect]
     Indication: COLON CANCER
     Dosage: DAILY DOSE OF 1500 MG MORNING AND1650 MG IN EVENING
     Route: 048
     Dates: start: 20060406
  3. XELODA [Suspect]
     Dosage: UNK
     Dates: start: 20060623, end: 20060712
  4. OXALIPLATIN [Suspect]
     Dosage: UNK
     Dates: start: 20060531
  5. OXALIPLATIN [Suspect]
     Dosage: UNK
     Dates: start: 20060623, end: 20060712
  6. XELODA [Suspect]
     Dosage: UNK
     Route: 048
     Dates: start: 20060531

REACTIONS (11)
  - ADRENAL MASS [None]
  - DIARRHOEA [None]
  - TOOTH EROSION [None]
  - NEUROPATHY PERIPHERAL [None]
  - WEIGHT DECREASED [None]
  - GENERAL PHYSICAL HEALTH DETERIORATION [None]
  - METASTASES TO LIVER [None]
  - NAUSEA [None]
  - MALAISE [None]
  - DENTAL CARIES [None]
  - TOOTH LOSS [None]
